FAERS Safety Report 13484871 (Version 1)
Quarter: 2017Q2

REPORT INFORMATION
  Report Type: Report from Study
  Country: US (occurrence: US)
  Receive Date: 20170425
  Receipt Date: 20170425
  Transmission Date: 20170830
  Serious: Yes (Death)
  Sender: FDA-Public Use
  Company Number: US-ROCHE-1919696

PATIENT
  Age: 86 Year
  Sex: Male

DRUGS (11)
  1. AMIODARONE [Concomitant]
     Active Substance: AMIODARONE
     Indication: ATRIAL FIBRILLATION
  2. FUROSEMIDE. [Concomitant]
     Active Substance: FUROSEMIDE
  3. TAMSULOSIN [Concomitant]
     Active Substance: TAMSULOSIN
  4. METOPROLOL. [Concomitant]
     Active Substance: METOPROLOL
  5. ESBRIET [Suspect]
     Active Substance: PIRFENIDONE
     Indication: IDIOPATHIC PULMONARY FIBROSIS
     Dosage: 21 DAYS ON AND 7 DAYS OFF
     Route: 048
     Dates: start: 20170327
  6. ASPIRIN. [Concomitant]
     Active Substance: ASPIRIN
  7. CLOPIDOGREL [Concomitant]
     Active Substance: CLOPIDOGREL BISULFATE
     Indication: CORONARY ARTERY DISEASE
  8. ELIQUIS [Concomitant]
     Active Substance: APIXABAN
     Indication: ATRIAL FIBRILLATION
  9. LOSARTAN. [Concomitant]
     Active Substance: LOSARTAN
  10. SPIRONOLACTONE. [Concomitant]
     Active Substance: SPIRONOLACTONE
  11. DIGOXIN. [Concomitant]
     Active Substance: DIGOXIN
     Indication: ATRIAL FIBRILLATION

REACTIONS (10)
  - Nausea [Unknown]
  - Dyspnoea [Unknown]
  - Cardio-respiratory arrest [Fatal]
  - Atrial fibrillation [Fatal]
  - Drug ineffective [Unknown]
  - Asthenia [Unknown]
  - Cardiac failure congestive [Fatal]
  - Coronary artery disease [Fatal]
  - Feeding disorder [Recovered/Resolved]
  - Vomiting [Unknown]

NARRATIVE: CASE EVENT DATE: 20170410
